FAERS Safety Report 9597668 (Version 1)
Quarter: 2013Q4

REPORT INFORMATION
  Report Type: Spontaneous
  Country: US (occurrence: US)
  Receive Date: 20131004
  Receipt Date: 20131004
  Transmission Date: 20140711
  Serious: No
  Sender: FDA-Public Use
  Company Number: US-AMGEN-USASP2013020380

PATIENT
  Age: 57 Year
  Sex: Female
  Weight: 70.3 kg

DRUGS (5)
  1. ENBREL [Suspect]
     Indication: RHEUMATOID ARTHRITIS
     Dosage: 50 MG, QWK
     Route: 058
  2. METHOTREXATE [Concomitant]
     Dosage: 2.5 MG, UNK
     Route: 048
  3. NABUMETONE [Concomitant]
     Dosage: 500 MG, UNK
     Route: 048
  4. ACTIVELLA [Concomitant]
     Dosage: 01-0.5MG
     Route: 048
  5. MULTICAPS [Concomitant]
     Dosage: UNK

REACTIONS (1)
  - Injection site pain [Unknown]
